FAERS Safety Report 9045553 (Version 1)
Quarter: 2013Q1

REPORT INFORMATION
  Report Type: Spontaneous
  Country: US (occurrence: US)
  Receive Date: 20130131
  Receipt Date: 20130131
  Transmission Date: 20140127
  Serious: No
  Sender: FDA-Public Use
  Company Number: US-PFIZER INC-2013038655

PATIENT
  Age: 42 Year
  Sex: Female
  Weight: 83.9 kg

DRUGS (4)
  1. CHANTIX [Suspect]
     Indication: SMOKING CESSATION THERAPY
     Dosage: UNK
     Route: 048
     Dates: start: 20130101
  2. NEURONTIN [Suspect]
     Indication: NEURALGIA
     Dosage: 300 MG, 3X/DAY
     Route: 048
  3. IBUPROFEN [Suspect]
     Indication: BACK PAIN
     Dosage: 600 MG, EVERY 6 HOURS
     Route: 048
  4. CYMBALTA [Suspect]
     Indication: DEPRESSION
     Dosage: 60 MG, DAILY
     Route: 048
     Dates: start: 20130123

REACTIONS (1)
  - Nausea [Not Recovered/Not Resolved]
